FAERS Safety Report 5823184-7 (Version None)
Quarter: 2008Q3

REPORT INFORMATION
  Report Type: 
  Country: None (occurrence: None)
  Receive Date: 20080725
  Receipt Date: 20080721
  Transmission Date: 20090109
  Serious: Yes (Death, Hospitalization)
  Sender: FDA-Public Use
  Company Number: PHHY2008FR15034

PATIENT
  Age: 79 Year
  Sex: Male

DRUGS (2)
  1. EXELON [Suspect]
     Indication: DEMENTIA ALZHEIMER'S TYPE
     Dosage: UNK
     Dates: start: 20010201
  2. MEMANTINE HCL [Concomitant]
     Dosage: UNK
     Dates: start: 20040201

REACTIONS (3)
  - DEATH [None]
  - DYSTONIA [None]
  - PLEUROTHOTONUS [None]
